FAERS Safety Report 8592404-0 (Version None)
Quarter: 2012Q3

REPORT INFORMATION
  Report Type: 
  Country: None (occurrence: None)
  Receive Date: 20120814
  Receipt Date: 20120806
  Transmission Date: 20120928
  Serious: Yes (Other)
  Sender: FDA-Public Use
  Company Number: US-SANOFI-AVENTIS-2012SA056427

PATIENT

DRUGS (1)
  1. ELIGARD [Suspect]
     Route: 065
     Dates: start: 20120418, end: 20120418

REACTIONS (1)
  - HAEMORRHAGE [None]
